FAERS Safety Report 24789762 (Version 1)
Quarter: 2024Q4

REPORT INFORMATION
  Report Type: Spontaneous
  Country: CN (occurrence: CN)
  Receive Date: 20241230
  Receipt Date: 20241230
  Transmission Date: 20250115
  Serious: Yes (Hospitalization, Other)
  Sender: AZURITY PHARMACEUTICALS
  Company Number: CN-AZURITY PHARMACEUTICALS, INC.-AZR202412-001435

PATIENT
  Age: 60 Year
  Sex: Male
  Weight: 83 kg

DRUGS (2)
  1. EDARBI [Suspect]
     Active Substance: AZILSARTAN KAMEDOXOMIL
     Indication: Essential hypertension
     Dosage: 80 MILLIGRAM, QD
     Route: 048
     Dates: start: 20240509, end: 20241010
  2. AMLODIPINE BESYLATE [Suspect]
     Active Substance: AMLODIPINE BESYLATE
     Indication: Essential hypertension
     Dosage: 80 MILLIGRAM, QD
     Route: 048
     Dates: start: 20240509, end: 20241010

REACTIONS (1)
  - Scan adrenal gland abnormal [Recovered/Resolved]

NARRATIVE: CASE EVENT DATE: 20241009
